FAERS Safety Report 10597314 (Version 2)
Quarter: 2014Q4

REPORT INFORMATION
  Report Type: Spontaneous
  Country: US (occurrence: US)
  Receive Date: 20141121
  Receipt Date: 20141212
  Transmission Date: 20150529
  Serious: Yes (Other)
  Sender: FDA-Public Use
  Company Number: US-AMGEN-USASP2014089292

PATIENT
  Age: 54 Year
  Sex: Female
  Weight: 61.68 kg

DRUGS (9)
  1. AFRIN                              /00070001/ [Concomitant]
     Dosage: UNK, 1- 2 SPRAYS EVERY EVENING
     Route: 045
     Dates: end: 20140925
  2. METHOTREXATE [Suspect]
     Active Substance: METHOTREXATE
     Indication: PRODUCT USED FOR UNKNOWN INDICATION
     Dosage: UNK
     Route: 048
  3. SUDAFED 12 HOUR [Concomitant]
     Active Substance: PSEUDOEPHEDRINE HYDROCHLORIDE
     Dosage: 120 MG, Q12H
     Route: 048
     Dates: start: 20121010, end: 20140925
  4. METHYLPREDNISOLONE. [Concomitant]
     Active Substance: METHYLPREDNISOLONE
     Dosage: 16 MG, EVERY OTHER DAY
     Route: 048
     Dates: start: 20140819, end: 20140925
  5. FLOVENT HFA [Concomitant]
     Active Substance: FLUTICASONE PROPIONATE
     Dosage: UNK, 1-2 PUFFS 2 TIMES DAILY
     Route: 045
     Dates: start: 20130328, end: 20140925
  6. ENBREL [Suspect]
     Active Substance: ETANERCEPT
     Indication: RHEUMATOID ARTHRITIS
     Dosage: 50 MG, QWK
     Route: 058
     Dates: start: 20050901, end: 20140925
  7. LEFLUNOMIDE. [Suspect]
     Active Substance: LEFLUNOMIDE
     Indication: PRODUCT USED FOR UNKNOWN INDICATION
     Dosage: 10 MG, EVERY DAY
     Route: 048
     Dates: start: 20140624, end: 20140925
  8. NAPROXEN. [Concomitant]
     Active Substance: NAPROXEN
     Dosage: 500 MG, BID
     Route: 048
     Dates: start: 20140624, end: 20140925
  9. IRON [Concomitant]
     Active Substance: IRON
     Dosage: UNK, 1 TABLET BY MOUTH EVERY DAY
     Route: 048
     Dates: start: 20080130

REACTIONS (21)
  - Skin ulcer [Unknown]
  - Raynaud^s phenomenon [Unknown]
  - Arthralgia [Unknown]
  - Bronchitis [Recovered/Resolved]
  - Deafness unilateral [Not Recovered/Not Resolved]
  - Sinusitis [Not Recovered/Not Resolved]
  - Feeling abnormal [Unknown]
  - Nasal congestion [Unknown]
  - Tympanic membrane disorder [Not Recovered/Not Resolved]
  - Ear infection [Unknown]
  - Malaise [Unknown]
  - Hyperkeratosis [Unknown]
  - Nasopharyngitis [Unknown]
  - Ageusia [Not Recovered/Not Resolved]
  - Drug ineffective [Recovered/Resolved]
  - Pain in extremity [Unknown]
  - Osteoarthritis [Unknown]
  - Upper respiratory tract infection [Recovered/Resolved]
  - Dry eye [Unknown]
  - Diarrhoea [Unknown]
  - Anosmia [Unknown]
